FAERS Safety Report 12487418 (Version 2)
Quarter: 2016Q2

REPORT INFORMATION
  Report Type: Report from Study
  Country: US (occurrence: US)
  Receive Date: 20160622
  Receipt Date: 20160623
  Transmission Date: 20160815
  Serious: Yes (Other)
  Sender: FDA-Public Use
  Company Number: US-ASTRAZENECA-2016SE34658

PATIENT
  Age: 630 Month
  Sex: Female
  Weight: 67.1 kg

DRUGS (4)
  1. ZYRTEC OTC [Concomitant]
     Indication: MULTIPLE ALLERGIES
  2. SYMBICORT [Suspect]
     Active Substance: BUDESONIDE\FORMOTEROL FUMARATE DIHYDRATE
     Indication: ASTHMA
     Dosage: 80/4.5 MCG, 2 PUFFS TWICE A DAY
     Route: 055
     Dates: start: 201605
  3. SYMBICORT [Suspect]
     Active Substance: BUDESONIDE\FORMOTEROL FUMARATE DIHYDRATE
     Indication: ASTHMA
     Dosage: 160/4.5 MCG, 2 PUFFS TWICE A DAY
     Route: 055
     Dates: start: 201604, end: 201605
  4. ALBUTEROL. [Concomitant]
     Active Substance: ALBUTEROL
     Dosage: 0.083%, 2.5MG/3ML, AS REQUIRED
     Route: 055

REACTIONS (10)
  - Asthma [Unknown]
  - Upper-airway cough syndrome [Unknown]
  - Adverse event [Recovered/Resolved]
  - Intentional product misuse [Unknown]
  - Insomnia [Unknown]
  - Dyslexia [Unknown]
  - Throat tightness [Unknown]
  - Feeling abnormal [Unknown]
  - Condition aggravated [Unknown]
  - Drug dose omission [Unknown]

NARRATIVE: CASE EVENT DATE: 201605
